FAERS Safety Report 10143212 (Version 3)
Quarter: 2014Q2

REPORT INFORMATION
  Report Type: Spontaneous
  Country: US (occurrence: US)
  Receive Date: 20140430
  Receipt Date: 20140520
  Transmission Date: 20141212
  Serious: Yes (Hospitalization)
  Sender: FDA-Public Use
  Company Number: US-JNJFOC-20140416357

PATIENT
  Sex: Female
  Weight: 50.8 kg

DRUGS (17)
  1. NUCYNTA IR [Suspect]
     Indication: PAIN
     Dosage: 3 OR 4 TIMES A DAY
     Route: 048
     Dates: start: 2010
  2. LORAZEPAM [Suspect]
     Indication: ANXIETY
     Route: 048
  3. LORAZEPAM [Suspect]
     Indication: ANXIETY
     Route: 048
  4. CELEBREX [Concomitant]
     Indication: RHEUMATOID ARTHRITIS
     Route: 048
     Dates: start: 2014
  5. DULOXETINE [Concomitant]
     Indication: DEPRESSION
     Route: 048
     Dates: start: 2008, end: 2014
  6. DULOXETINE [Concomitant]
     Indication: DEPRESSION
     Route: 048
     Dates: start: 2014
  7. DULOXETINE [Concomitant]
     Indication: PAIN
     Route: 048
     Dates: start: 2008, end: 2014
  8. DULOXETINE [Concomitant]
     Indication: PAIN
     Route: 048
     Dates: start: 2014
  9. ASPIRIN [Concomitant]
     Indication: CARDIAC DISORDER
     Route: 048
     Dates: start: 2013
  10. DEXILANT [Concomitant]
     Indication: GASTROOESOPHAGEAL REFLUX DISEASE
     Route: 048
     Dates: start: 201403
  11. NEXIUM [Concomitant]
     Indication: GASTROOESOPHAGEAL REFLUX DISEASE
     Route: 048
     Dates: end: 201403
  12. LIPITOR [Concomitant]
     Indication: BLOOD CHOLESTEROL
     Route: 048
  13. LORAZEPAM [Concomitant]
     Indication: ANXIETY
     Route: 048
     Dates: start: 2013
  14. LORAZEPAM [Concomitant]
     Indication: ANXIETY
     Route: 048
     Dates: end: 2014
  15. ZOLPIDEM [Concomitant]
     Indication: SLEEP DISORDER
     Route: 048
  16. GABAPENTIN [Concomitant]
     Indication: PAIN
     Dosage: 3-4 TIMES A DAY
     Route: 048
  17. MORPHINE [Concomitant]
     Indication: PAIN
     Route: 003
     Dates: end: 2012

REACTIONS (6)
  - Pneumonia [Recovered/Resolved]
  - Cystitis [Recovered/Resolved]
  - Loss of consciousness [Recovered/Resolved]
  - Drug effect incomplete [Not Recovered/Not Resolved]
  - Fall [Recovered/Resolved]
  - Anaemia [Recovered/Resolved]
